FAERS Safety Report 6781386-X (Version None)
Quarter: 2010Q2

REPORT INFORMATION
  Report Type: 
  Country: None (occurrence: None)
  Receive Date: 20100621
  Receipt Date: 20091202
  Transmission Date: 20101027
  Serious: No
  Sender: FDA-Public Use
  Company Number: US-AMGEN-KDL377735

PATIENT

DRUGS (2)
  1. ARANESP [Suspect]
     Indication: DRUG USE FOR UNKNOWN INDICATION
  2. NEUPOGEN [Suspect]
     Indication: DRUG USE FOR UNKNOWN INDICATION

REACTIONS (1)
  - POSITRON EMISSION TOMOGRAM ABNORMAL [None]
